FAERS Safety Report 8504593-4 (Version None)
Quarter: 2012Q3

REPORT INFORMATION
  Report Type: 
  Country: None (occurrence: None)
  Receive Date: 20120711
  Receipt Date: 20120709
  Transmission Date: 20120928
  Serious: Yes (Other)
  Sender: FDA-Public Use
  Company Number: BR-009507513-1207BRA001167

PATIENT

DRUGS (1)
  1. SINGULAIR [Suspect]
     Indication: ASTHMATIC CRISIS
     Dosage: UNK

REACTIONS (4)
  - AGITATION [None]
  - CONVULSION [None]
  - SWELLING [None]
  - IRRITABILITY [None]
